FAERS Safety Report 5577618-6 (Version None)
Quarter: 2007Q4

REPORT INFORMATION
  Report Type: 
  Country: None (occurrence: None)
  Receive Date: 20071231
  Receipt Date: 20071219
  Transmission Date: 20080405
  Serious: Yes (Hospitalization)
  Sender: FDA-Public Use
  Company Number: PHHO2007US13336

PATIENT
  Age: 55 Year
  Sex: Male

DRUGS (3)
  1. CERTICAN [Suspect]
     Indication: RENAL TRANSPLANT
     Dosage: 720 MG, QD
     Route: 048
     Dates: start: 20070725, end: 20070818
  2. PREDNISONE TAB [Concomitant]
     Indication: RENAL TRANSPLANT
  3. NEORAL [Concomitant]
     Indication: RENAL TRANSPLANT

REACTIONS (19)
  - ABDOMINAL PAIN [None]
  - ACUTE RESPIRATORY FAILURE [None]
  - ANAEMIA [None]
  - ARTHRALGIA [None]
  - FALL [None]
  - HAEMATOMA [None]
  - HAEMATOMA EVACUATION [None]
  - HAEMATURIA [None]
  - INTRA-ABDOMINAL HAEMORRHAGE [None]
  - KLEBSIELLA INFECTION [None]
  - MUSCULAR WEAKNESS [None]
  - OXYGEN SATURATION DECREASED [None]
  - PNEUMOTHORAX [None]
  - POLYOMAVIRUS-ASSOCIATED NEPHROPATHY [None]
  - PYREXIA [None]
  - SEPSIS [None]
  - URINARY ANASTOMOTIC LEAK [None]
  - WOUND DEHISCENCE [None]
  - WOUND HAEMORRHAGE [None]
